FAERS Safety Report 8780849 (Version 1)
Quarter: 2012Q4

REPORT INFORMATION
  Report Type: 
  Country: JP (occurrence: JP)
  Receive Date: 20120913
  Receipt Date: 20120913
  Transmission Date: 20130627
  Serious: Yes (Hospitalization)
  Sender: FDA-Public Use
  Company Number: JP-ELI_LILLY_AND_COMPANY-JP201209001414

PATIENT
  Age: 87 Year
  Sex: Female

DRUGS (7)
  1. FORTEO [Suspect]
     Dosage: UNK
     Route: 058
     Dates: start: 20120830
  2. TAKEPRON [Concomitant]
     Dosage: UNK
  3. MAGMITT [Concomitant]
     Dosage: UNK
  4. FURSULTIAMINE [Concomitant]
     Dosage: UNK
  5. NEUROVITAN [Concomitant]
     Dosage: UNK
  6. GASMOTIN [Concomitant]
     Dosage: UNK
  7. LOXONIN [Concomitant]
     Dosage: UNK

REACTIONS (3)
  - Asthma [Recovered/Resolved]
  - Wheezing [Recovered/Resolved]
  - Chest discomfort [Recovered/Resolved]
